FAERS Safety Report 7038292-5 (Version None)
Quarter: 2010Q4

REPORT INFORMATION
  Report Type: 
  Country: None (occurrence: None)
  Receive Date: 20101011
  Receipt Date: 20100106
  Transmission Date: 20110411
  Serious: No
  Sender: FDA-Public Use
  Company Number: US-PFIZER INC-2010002728

PATIENT
  Sex: Female
  Weight: 53.515 kg

DRUGS (7)
  1. NEURONTIN [Suspect]
     Indication: NEURALGIA
     Dosage: 300 MG, 1X/DAY
     Route: 048
     Dates: start: 20090601, end: 20090801
  2. COPAXONE [Concomitant]
     Indication: MULTIPLE SCLEROSIS
     Dosage: 20 MG/ML, 1X/DAY
     Route: 058
  3. PREMARIN [Concomitant]
     Indication: HORMONE REPLACEMENT THERAPY
     Dosage: 1.25 MG, 1X/DAY
     Route: 048
  4. TOPAMAX [Concomitant]
     Indication: MIGRAINE
     Dosage: 100 MG, 1X/DAY
     Route: 048
  5. ZETIA [Concomitant]
     Indication: BLOOD CHOLESTEROL INCREASED
     Dosage: 10 MG, 1X/DAY
     Route: 048
  6. VITAMINS [Concomitant]
     Dosage: UNK
     Route: 048
  7. BACLOFEN [Concomitant]
     Indication: GAIT DISTURBANCE
     Dosage: 20 MG, 1X/DAY
     Route: 048

REACTIONS (1)
  - ALOPECIA [None]
